FAERS Safety Report 24404968 (Version 1)
Quarter: 2024Q4

REPORT INFORMATION
  Report Type: Report from Study
  Country: CA (occurrence: CA)
  Receive Date: 20241007
  Receipt Date: 20241007
  Transmission Date: 20250115
  Serious: Yes (Hospitalization, Other)
  Sender: GILEAD
  Company Number: CA-GILEAD-2024-0683767

PATIENT
  Sex: Female

DRUGS (1)
  1. AZTREONAM LYSINE [Suspect]
     Active Substance: AZTREONAM LYSINE
     Indication: Cystic fibrosis
     Dosage: 75MG ( 1 VIAL) BY INHALATION 3 TIMES DAILY CONTINUOUSLY WITHOUT DRUG FREE INTERVAL
     Route: 055
     Dates: start: 20220111

REACTIONS (3)
  - Pneumonia pseudomonal [Unknown]
  - Drug dose omission by device [Unknown]
  - Off label use [Not Recovered/Not Resolved]
